FAERS Safety Report 5240331-9 (Version None)
Quarter: 2007Q1

REPORT INFORMATION
  Report Type: 
  Country: None (occurrence: None)
  Receive Date: 20070219
  Receipt Date: 20070205
  Transmission Date: 20070707
  Serious: Yes (Other)
  Sender: FDA-Public Use
  Company Number: PHNU2006DE03313

PATIENT
  Age: 40 Year
  Sex: Female
  Weight: 50 kg

DRUGS (3)
  1. HEPARIN [Suspect]
     Indication: BUDD-CHIARI SYNDROME
     Route: 065
  2. GLEEVEC [Suspect]
     Indication: GASTROINTESTINAL STROMAL TUMOUR
     Dosage: 400 MG, QD
     Route: 048
     Dates: start: 20030714
  3. MARCUMAR [Suspect]
     Indication: BUDD-CHIARI SYNDROME
     Route: 048

REACTIONS (10)
  - ALANINE AMINOTRANSFERASE INCREASED [None]
  - ASPARTATE AMINOTRANSFERASE INCREASED [None]
  - BLOOD ALKALINE PHOSPHATASE INCREASED [None]
  - BUDD-CHIARI SYNDROME [None]
  - CONDITION AGGRAVATED [None]
  - GAMMA-GLUTAMYLTRANSFERASE INCREASED [None]
  - HEPATOTOXICITY [None]
  - INTERNATIONAL NORMALISED RATIO DECREASED [None]
  - TRANSAMINASES ABNORMAL [None]
  - VENA CAVA THROMBOSIS [None]
